FAERS Safety Report 25789123 (Version 3)
Quarter: 2025Q4

REPORT INFORMATION
  Report Type: Report from Study
  Country: US (occurrence: US)
  Receive Date: 20250911
  Receipt Date: 20251214
  Transmission Date: 20260118
  Serious: No
  Sender: SANDOZ
  Company Number: US-SANDOZ-SDZ2025US058094

PATIENT
  Sex: Female

DRUGS (4)
  1. OMNITROPE [Suspect]
     Active Substance: SOMATROPIN
     Dosage: 0.55 MG, QD (STRENGTH: 5 MG/1.5 ML)
     Route: 058
  2. OMNITROPE [Suspect]
     Active Substance: SOMATROPIN
     Dosage: 0.55 MG, QD (STRENGTH: 5 MG/1.5 ML)
     Route: 058
  3. OMNITROPE [Suspect]
     Active Substance: SOMATROPIN
     Indication: Hypopituitarism
     Dosage: 0.55 MG, QD (STRENGTH: 5 MG/1.5 ML)
     Route: 058
  4. OMNITROPE [Suspect]
     Active Substance: SOMATROPIN
     Indication: Hypopituitarism
     Dosage: 0.55 MG, QD (STRENGTH: 5 MG/1.5 ML)
     Route: 058

REACTIONS (4)
  - Circumstance or information capable of leading to device use error [Unknown]
  - Incorrect dose administered [Unknown]
  - Device leakage [Unknown]
  - Device mechanical issue [Unknown]
